FAERS Safety Report 6110264-4 (Version None)
Quarter: 2009Q1

REPORT INFORMATION
  Report Type: 
  Country: None (occurrence: None)
  Receive Date: 20090309
  Receipt Date: 20090309
  Transmission Date: 20090719
  Serious: Yes (Other)
  Sender: FDA-Public Use
  Company Number: None

PATIENT
  Age: 43 Year
  Sex: Female
  Weight: 53.0709 kg

DRUGS (2)
  1. CLINDAMYCIN HCL [Suspect]
     Indication: BACTERIAL INFECTION
     Dosage: 1 CAPSULE EVERY 6 HOURS DENTAL 28
     Route: 004
     Dates: start: 20071102, end: 20071130
  2. CLINDAMYCIN HCL [Suspect]
     Indication: BACTERIAL INFECTION
     Dosage: 1 CAPSULE EVERY 6 HOURS DENTAL 28
     Route: 004
     Dates: start: 20071214, end: 20080110

REACTIONS (3)
  - ABDOMINAL DISTENSION [None]
  - COLITIS [None]
  - WEIGHT DECREASED [None]
